FAERS Safety Report 13828034 (Version 1)
Quarter: 2017Q3

REPORT INFORMATION
  Report Type: Report from Study
  Country: DE (occurrence: DE)
  Receive Date: 20170803
  Receipt Date: 20170803
  Transmission Date: 20171127
  Serious: Yes (Hospitalization)
  Sender: FDA-Public Use
  Company Number: DE-ROCHE-1969640

PATIENT
  Age: 16 Year
  Sex: Male
  Weight: 69.2 kg

DRUGS (6)
  1. PANTOZOL [Concomitant]
     Active Substance: PANTOPRAZOLE SODIUM
     Route: 065
     Dates: start: 201705
  2. PREDNISON [Suspect]
     Active Substance: PREDNISONE
     Indication: STILL^S DISEASE
     Route: 048
     Dates: start: 20111217
  3. TOCILIZUMAB. [Suspect]
     Active Substance: TOCILIZUMAB
     Indication: STILL^S DISEASE
     Route: 042
     Dates: start: 20111217, end: 20170531
  4. NOVALGIN [Concomitant]
     Active Substance: METAMIZOLE SODIUM
     Indication: STILL^S DISEASE
     Route: 048
     Dates: start: 20160628
  5. METHOTREXATE (METHOTREXATE SODIUM) [Suspect]
     Active Substance: METHOTREXATE SODIUM
     Indication: STILL^S DISEASE
     Route: 048
     Dates: start: 20090303
  6. ETORICOXIB [Concomitant]
     Active Substance: ETORICOXIB
     Indication: STILL^S DISEASE
     Route: 048
     Dates: start: 20160120

REACTIONS (2)
  - Pain in extremity [Recovered/Resolved]
  - Back pain [Recovered/Resolved]

NARRATIVE: CASE EVENT DATE: 20170612
